FAERS Safety Report 9524434 (Version 1)
Quarter: 2013Q1

REPORT INFORMATION
  Report Type: Spontaneous
  Country: US (occurrence: None)
  Receive Date: 20130305
  Receipt Date: 20130305
  Transmission Date: 20140127
  Serious: Yes (Other)
  Sender: FDA-Public Use
  Company Number: 163-21880-12022480

PATIENT
  Age: 67 Year
  Sex: Female

DRUGS (1)
  1. REVLIMID [Suspect]
     Indication: PLASMA CELL MYELOMA
     Dosage: 5 MG, DAILY X21 DAYS, PO
     Route: 048
     Dates: start: 20111028

REACTIONS (7)
  - Chest pain [None]
  - Diarrhoea [None]
  - Syncope [None]
  - Hypotension [None]
  - Hypokalaemia [None]
  - Hypomagnesaemia [None]
  - Rash [None]
